FAERS Safety Report 17075587 (Version 1)
Quarter: 2019Q4

REPORT INFORMATION
  Report Type: Spontaneous
  Country: US (occurrence: US)
  Receive Date: 20191125
  Receipt Date: 20191125
  Transmission Date: 20200122
  Serious: No
  Sender: FDA-Public Use
  Company Number: None

PATIENT
  Age: 88 Year
  Sex: Male
  Weight: 67.5 kg

DRUGS (6)
  1. XTANDI [Suspect]
     Active Substance: ENZALUTAMIDE
     Indication: PROSTATE CANCER
     Route: 048
     Dates: start: 20191001
  2. LOSARTAN 50MG [Concomitant]
     Active Substance: LOSARTAN
  3. SIMVASTATIN 40MG [Concomitant]
     Active Substance: SIMVASTATIN
  4. ASPIRIN 81MG [Concomitant]
     Active Substance: ASPIRIN
  5. ELIGARD [Concomitant]
     Active Substance: LEUPROLIDE ACETATE
     Dates: start: 20110407
  6. BICALUTAMIDE 50MG [Concomitant]
     Active Substance: BICALUTAMIDE

REACTIONS (1)
  - Fatigue [None]

NARRATIVE: CASE EVENT DATE: 20191119
